FAERS Safety Report 17783398 (Version 1)
Quarter: 2020Q2

REPORT INFORMATION
  Report Type: Spontaneous
  Country: SE (occurrence: SE)
  Receive Date: 20200513
  Receipt Date: 20200513
  Transmission Date: 20200714
  Serious: Yes (Disabling)
  Sender: FDA-Public Use
  Company Number: SE-JNJFOC-20191035457

PATIENT
  Sex: Male
  Weight: 55 kg

DRUGS (2)
  1. TRAMADOL HYDROCHLORIDE. [Suspect]
     Active Substance: TRAMADOL HYDROCHLORIDE
     Indication: PARALYSIS
     Dosage: 100 MG, 1/DAY
     Route: 065
     Dates: start: 20050822
  2. LYRICA [Suspect]
     Active Substance: PREGABALIN
     Indication: PARALYSIS
     Dosage: 100 MG, 1/DAY
     Route: 065
     Dates: start: 20050822

REACTIONS (4)
  - Tic [Not Recovered/Not Resolved]
  - Abdominal pain upper [Not Recovered/Not Resolved]
  - Headache [Not Recovered/Not Resolved]
  - Anxiety [Not Recovered/Not Resolved]
